FAERS Safety Report 13185276 (Version 4)
Quarter: 2017Q2

REPORT INFORMATION
  Report Type: Spontaneous
  Country: AT (occurrence: AT)
  Receive Date: 20170203
  Receipt Date: 20170609
  Transmission Date: 20170830
  Serious: Yes (Other)
  Sender: FDA-Public Use
  Company Number: AT-ELI_LILLY_AND_COMPANY-AT201701009990

PATIENT
  Age: 30 Year
  Sex: Male
  Weight: 79.55 kg

DRUGS (32)
  1. RISPERDAL [Suspect]
     Active Substance: RISPERIDONE
     Indication: PRODUCT USED FOR UNKNOWN INDICATION
     Dosage: 2 MG, UNKNOWN
     Route: 048
     Dates: start: 20160928, end: 20160928
  2. RISPERDAL [Suspect]
     Active Substance: RISPERIDONE
     Dosage: 6 MG, UNKNOWN
     Route: 048
     Dates: start: 20161002, end: 20161010
  3. TEMESTA                            /00273201/ [Suspect]
     Active Substance: LORAZEPAM
     Indication: PRODUCT USED FOR UNKNOWN INDICATION
     Dosage: 2.5 MG, UNKNOWN
     Route: 065
     Dates: start: 20160930, end: 20160930
  4. TEMESTA                            /00273201/ [Suspect]
     Active Substance: LORAZEPAM
     Dosage: 3.5 MG, UNKNOWN
     Route: 065
     Dates: start: 20161001, end: 20161001
  5. TEMESTA                            /00273201/ [Suspect]
     Active Substance: LORAZEPAM
     Dosage: 1.25 MG, UNKNOWN
     Route: 065
     Dates: start: 20161006, end: 20161023
  6. CALCIUM GLYCEROPHOSPHATE\CELLULOSE\POLYETHYLENE GLYCOL\SACCHARIN SODIUM\SODIUM HYDROXIDE\SODIUM LAURYL SULFATE\SODIUM MAGNESIUM SILICATE\SODIUM MONOFLUOROPHOSPHATE\SORBITOL\WATER [Concomitant]
     Active Substance: CALCIUM GLYCEROPHOSPHATE\POLYETHYLENE GLYCOLS\POWDERED CELLULOSE\SACCHARIN SODIUM DIHYDRATE\SODIUM HYDROXIDE\SODIUM LAURYL SULFATE\SODIUM MAGNESIUM SILICATE\SODIUM MONOFLUOROPHOSPHATE\SORBITOL\WATER
     Dosage: 1 DF, UNKNOWN
     Route: 065
     Dates: start: 20161112, end: 20161113
  7. ZYPREXA [Interacting]
     Active Substance: OLANZAPINE
     Dosage: 15 MG, UNKNOWN
     Route: 065
     Dates: start: 201606, end: 20160913
  8. THYREX [Concomitant]
     Active Substance: LEVOTHYROXINE SODIUM
     Indication: THYROID DISORDER
     Dosage: 75 UG, OTHER (MON, TUE, THU, FRI, SAT)
     Route: 048
  9. RISPERDAL [Suspect]
     Active Substance: RISPERIDONE
     Dosage: 4 MG, UNKNOWN
     Route: 048
     Dates: start: 20160929, end: 20161001
  10. RISPERDAL [Suspect]
     Active Substance: RISPERIDONE
     Dosage: 8 MG, UNKNOWN
     Route: 048
     Dates: start: 20161011, end: 20161017
  11. TRITTICO [Suspect]
     Active Substance: TRAZODONE HYDROCHLORIDE
     Indication: PRODUCT USED FOR UNKNOWN INDICATION
     Dosage: 50 MG, UNKNOWN
     Route: 048
     Dates: start: 20161103, end: 20161108
  12. ZYPREXA [Interacting]
     Active Substance: OLANZAPINE
     Dosage: 20 MG, UNKNOWN
     Route: 065
     Dates: start: 20160914, end: 20161002
  13. THYREX [Concomitant]
     Active Substance: LEVOTHYROXINE SODIUM
     Dosage: 100 UG, OTHER (WED, SUN)
     Route: 048
  14. ABILIFY [Interacting]
     Active Substance: ARIPIPRAZOLE
     Dosage: 20 MG, UNKNOWN
     Route: 065
     Dates: start: 20160615, end: 20160823
  15. ABILIFY [Interacting]
     Active Substance: ARIPIPRAZOLE
     Dosage: 25 MG, UNKNOWN
     Route: 065
     Dates: start: 20160824, end: 20160928
  16. ABILIFY [Interacting]
     Active Substance: ARIPIPRAZOLE
     Dosage: 10 MG, UNKNOWN
     Route: 065
     Dates: start: 20161018, end: 20161025
  17. TEMESTA                            /00273201/ [Suspect]
     Active Substance: LORAZEPAM
     Dosage: 1 MG, UNKNOWN
     Route: 065
     Dates: start: 20161108, end: 20161109
  18. LORAZEPAM. [Suspect]
     Active Substance: LORAZEPAM
     Dosage: 3.75 MG, UNKNOWN
     Route: 065
     Dates: start: 20161025, end: 20161026
  19. LORAZEPAM. [Suspect]
     Active Substance: LORAZEPAM
     Dosage: 5 MG, UNKNOWN
     Route: 065
     Dates: start: 20161027, end: 20161027
  20. XEPLION [Suspect]
     Active Substance: PALIPERIDONE PALMITATE
     Indication: PRODUCT USED FOR UNKNOWN INDICATION
     Dosage: UNK, UNKNOWN
     Route: 030
  21. SIMVASTATIN. [Concomitant]
     Active Substance: SIMVASTATIN
     Indication: LIPIDS
     Dosage: 20 MG, UNKNOWN
     Route: 048
  22. RISPERDAL [Suspect]
     Active Substance: RISPERIDONE
     Dosage: 6 MG, UNKNOWN
     Route: 048
     Dates: start: 20161108, end: 20161108
  23. LEPONEX [Suspect]
     Active Substance: CLOZAPINE
     Indication: PRODUCT USED FOR UNKNOWN INDICATION
     Dosage: 25 MG, UNKNOWN
     Route: 065
     Dates: start: 20161025, end: 20161025
  24. SANOSTOL                           /00067501/ [Concomitant]
     Indication: VITAMIN SUPPLEMENTATION
     Dosage: 1 ML, UNKNOWN
     Route: 048
     Dates: start: 20161104, end: 20161122
  25. CALCIUM GLYCEROPHOSPHATE\CELLULOSE\POLYETHYLENE GLYCOL\SACCHARIN SODIUM\SODIUM HYDROXIDE\SODIUM LAURYL SULFATE\SODIUM MAGNESIUM SILICATE\SODIUM MONOFLUOROPHOSPHATE\SORBITOL\WATER [Concomitant]
     Active Substance: CALCIUM GLYCEROPHOSPHATE\POLYETHYLENE GLYCOLS\POWDERED CELLULOSE\SACCHARIN SODIUM DIHYDRATE\SODIUM HYDROXIDE\SODIUM LAURYL SULFATE\SODIUM MAGNESIUM SILICATE\SODIUM MONOFLUOROPHOSPHATE\SORBITOL\WATER
     Indication: GASTROINTESTINAL DISORDER
     Dosage: 8 DF, UNKNOWN
     Route: 065
     Dates: start: 20161027, end: 20161111
  26. ABILIFY [Interacting]
     Active Substance: ARIPIPRAZOLE
     Indication: PRODUCT USED FOR UNKNOWN INDICATION
     Dosage: 15 MG, UNKNOWN
     Route: 065
     Dates: start: 201605, end: 20160614
  27. RISPERDAL [Suspect]
     Active Substance: RISPERIDONE
     Dosage: 2 MG, UNKNOWN
     Route: 048
     Dates: start: 20161109, end: 20161109
  28. ZYPREXA [Suspect]
     Active Substance: OLANZAPINE
     Indication: SCHIZOPHRENIA
     Dosage: 20 MG, QD
     Route: 065
     Dates: start: 201605, end: 201605
  29. ABILIFY [Interacting]
     Active Substance: ARIPIPRAZOLE
     Dosage: 15 MG, UNKNOWN
     Route: 065
     Dates: start: 20160929, end: 20161017
  30. RISPERDAL [Suspect]
     Active Substance: RISPERIDONE
     Indication: PRODUCT USED FOR UNKNOWN INDICATION
     Dosage: 10 MG, UNKNOWN
     Route: 048
     Dates: start: 20161018, end: 20161107
  31. LORAZEPAM. [Suspect]
     Active Substance: LORAZEPAM
     Indication: PRODUCT USED FOR UNKNOWN INDICATION
     Dosage: 1.25 MG, UNKNOWN
     Route: 065
     Dates: start: 20161024, end: 20161024
  32. GLADEM [Concomitant]
     Active Substance: SERTRALINE HYDROCHLORIDE
     Indication: PRODUCT USED FOR UNKNOWN INDICATION
     Dosage: 50 MG, UNKNOWN
     Route: 048
     Dates: start: 20161028

REACTIONS (9)
  - Catatonia [Unknown]
  - Blood prolactin increased [Unknown]
  - Drug level increased [Unknown]
  - Fatigue [Unknown]
  - Blood cholesterol increased [Recovered/Resolved]
  - Drug interaction [Recovering/Resolving]
  - Urinary retention [Unknown]
  - Sedation [Unknown]
  - Chills [Recovering/Resolving]

NARRATIVE: CASE EVENT DATE: 201605
